FAERS Safety Report 5544127-X (Version None)
Quarter: 2007Q4

REPORT INFORMATION
  Report Type: 
  Country: None (occurrence: None)
  Receive Date: 20071206
  Receipt Date: 20071128
  Transmission Date: 20080405
  Serious: Yes (Hospitalization)
  Sender: FDA-Public Use
  Company Number: CIP07002471

PATIENT
  Age: 14 Year
  Sex: Male
  Weight: 45.4 kg

DRUGS (2)
  1. ASACOL [Suspect]
     Indication: CROHN'S DISEASE
     Dosage: 400 MG 9 TABLETS DAILY, ORAL
     Route: 048
     Dates: end: 20071124
  2. CANASA                                         (MESALAZINE) SUPPOSITOR [Concomitant]

REACTIONS (12)
  - BACK PAIN [None]
  - CHEILITIS [None]
  - CHEST PAIN [None]
  - CONJUNCTIVITIS [None]
  - COUGH [None]
  - FATIGUE [None]
  - JOINT SWELLING [None]
  - MOUTH ULCERATION [None]
  - MUSCULOSKELETAL PAIN [None]
  - PHARYNGEAL ULCERATION [None]
  - PLEURAL EFFUSION [None]
  - TONGUE ULCERATION [None]
